FAERS Safety Report 17656096 (Version 1)
Quarter: 2020Q2

REPORT INFORMATION
  Report Type: Spontaneous
  Country: ZA (occurrence: ZA)
  Receive Date: 20200410
  Receipt Date: 20200410
  Transmission Date: 20200713
  Serious: Yes (Other)
  Sender: FDA-Public Use
  Company Number: ZA-SA-2020SA090147

PATIENT
  Age: 48 Year
  Sex: Female
  Weight: 100 kg

DRUGS (3)
  1. SULFASALAZINE. [Suspect]
     Active Substance: SULFASALAZINE
     Dosage: 2000 MG
     Route: 065
     Dates: start: 201902
  2. ARAVA [Suspect]
     Active Substance: LEFLUNOMIDE
     Dosage: 10 MG
     Route: 065
     Dates: start: 201908
  3. METHOTREXATE. [Suspect]
     Active Substance: METHOTREXATE
     Dosage: 20 MG
     Route: 065
     Dates: start: 201811

REACTIONS (3)
  - Rheumatoid arthritis [Unknown]
  - Anti-cyclic citrullinated peptide antibody positive [Unknown]
  - C-reactive protein [Unknown]

NARRATIVE: CASE EVENT DATE: 20190829
